FAERS Safety Report 7678712-6 (Version None)
Quarter: 2011Q3

REPORT INFORMATION
  Report Type: 
  Country: None (occurrence: None)
  Receive Date: 20110811
  Receipt Date: 20110810
  Transmission Date: 20111222
  Serious: Yes (Hospitalization, Other)
  Sender: FDA-Public Use
  Company Number: JP-ABBOTT-11P-087-0845249-00

PATIENT
  Sex: Female
  Weight: 54.5 kg

DRUGS (9)
  1. MESALAMINE [Concomitant]
     Indication: CROHN'S DISEASE
     Dosage: 3000 MG DAILY
     Route: 048
  2. MECOBALAMIN [Concomitant]
     Indication: PRODUCT USED FOR UNKNOWN INDICATION
     Dosage: 1500 MCG DAILY
     Route: 048
  3. HUMIRA [Suspect]
     Indication: CROHN'S DISEASE
     Route: 058
     Dates: start: 20110106, end: 20110106
  4. HUMIRA [Suspect]
     Dates: start: 20110203
  5. ISONIAZID [Concomitant]
     Indication: ANTIBIOTIC PROPHYLAXIS
     Route: 048
     Dates: start: 20101224
  6. HUMIRA [Suspect]
     Dates: start: 20110120, end: 20110120
  7. CLOSTRIDIUM BUTYRICUM [Concomitant]
     Indication: PRODUCT USED FOR UNKNOWN INDICATION
     Dosage: 3 TABS DAILY
     Route: 048
  8. PYRIDOXAL PHOSPHATE HYDRATE [Concomitant]
     Indication: PRODUCT USED FOR UNKNOWN INDICATION
     Dosage: 25.6 MG DAILY
     Route: 048
     Dates: start: 20110106
  9. ENTERAL NUTRITION THERAPY [Concomitant]
     Indication: CROHN'S DISEASE

REACTIONS (2)
  - SUBILEUS [None]
  - ENTERITIS INFECTIOUS [None]
